FAERS Safety Report 15727516 (Version 2)
Quarter: 2019Q1

REPORT INFORMATION
  Report Type: Report from Study
  Country: US (occurrence: US)
  Receive Date: 20181217
  Receipt Date: 20190214
  Transmission Date: 20190417
  Serious: Yes (Life-Threatening, Hospitalization)
  Sender: FDA-Public Use
  Company Number: US-AMGEN-USASP2018177419

PATIENT
  Age: 75 Year
  Sex: Female

DRUGS (1)
  1. REPATHA [Suspect]
     Active Substance: EVOLOCUMAB
     Indication: BLOOD CHOLESTEROL INCREASED
     Dosage: 140 MG, Q2WK
     Route: 065
     Dates: start: 20181108, end: 201812

REACTIONS (6)
  - Meningitis bacterial [Unknown]
  - Arthropod bite [Unknown]
  - Haemoglobin decreased [Unknown]
  - Infected bite [Unknown]
  - Haematocrit decreased [Unknown]
  - Inflammation [Unknown]
